FAERS Safety Report 13465155 (Version 3)
Quarter: 2017Q3

REPORT INFORMATION
  Report Type: Spontaneous
  Country: US (occurrence: US)
  Receive Date: 20170421
  Receipt Date: 20170915
  Transmission Date: 20171127
  Serious: No
  Sender: FDA-Public Use
  Company Number: US-009507513-1704USA003383

PATIENT
  Age: 56 Year
  Sex: Female

DRUGS (6)
  1. ZEPATIER [Suspect]
     Active Substance: ELBASVIR\GRAZOPREVIR
     Indication: HEPATITIS C
     Dosage: 1 TABLET EVERY DAY
     Route: 048
     Dates: start: 20170331, end: 20170403
  2. ASPIRIN. [Concomitant]
     Active Substance: ASPIRIN
     Route: 048
  3. LEVOTHYROXINE SODIUM. [Concomitant]
     Active Substance: LEVOTHYROXINE SODIUM
     Route: 048
  4. DIGOXIN. [Concomitant]
     Active Substance: DIGOXIN
  5. HYDROCHLOROTHIAZIDE. [Concomitant]
     Active Substance: HYDROCHLOROTHIAZIDE
  6. GABAPENTIN. [Concomitant]
     Active Substance: GABAPENTIN

REACTIONS (3)
  - Abnormal behaviour [Recovered/Resolved]
  - Muscle twitching [Unknown]
  - Eye movement disorder [Unknown]

NARRATIVE: CASE EVENT DATE: 20170401
